FAERS Safety Report 12921323 (Version 1)
Quarter: 2016Q4

REPORT INFORMATION
  Report Type: Spontaneous
  Country: FR (occurrence: FR)
  Receive Date: 20161107
  Receipt Date: 20161107
  Transmission Date: 20170207
  Serious: Yes (Other)
  Sender: FDA-Public Use
  Company Number: PHHY2016FR151192

PATIENT
  Age: 40 Year
  Sex: Male

DRUGS (1)
  1. OMNITROPE [Suspect]
     Active Substance: SOMATROPIN
     Indication: WEIGHT INCREASED
     Dosage: 4 DF, QD
     Route: 058

REACTIONS (4)
  - Wrong technique in product usage process [Unknown]
  - Product quality issue [Unknown]
  - Product use issue [Unknown]
  - Intentional product misuse [Unknown]
